FAERS Safety Report 7694560-5 (Version None)
Quarter: 2011Q3

REPORT INFORMATION
  Report Type: 
  Country: None (occurrence: None)
  Receive Date: 20110819
  Receipt Date: 20110801
  Transmission Date: 20111222
  Serious: Yes (Hospitalization, Other)
  Sender: FDA-Public Use
  Company Number: PHHY2011ES69453

PATIENT
  Age: 55 Year
  Sex: Male

DRUGS (6)
  1. ISOSORBIDE MONONITRATE [Interacting]
     Indication: PROPHYLAXIS
     Dosage: 20 MG, QD
     Route: 048
  2. ENALAPRIL MALEATE [Suspect]
     Indication: HYPERTENSION
     Dosage: 10 MG, QD
     Dates: start: 20090201, end: 20100520
  3. CERTICAN [Concomitant]
     Indication: PROPHYLAXIS
     Dosage: 1.5 MG, QD
     Route: 048
     Dates: start: 20080601
  4. OMEPRAZOLE [Concomitant]
     Indication: PROPHYLAXIS
     Dosage: 20 MG, QD
     Route: 048
  5. VALSARTAN [Interacting]
     Indication: HYPERTENSION
     Dosage: 160 MG, DAILY
     Route: 048
     Dates: start: 20090201, end: 20100520
  6. ATORVASTATIN CALCIUM [Concomitant]
     Indication: DYSLIPIDAEMIA
     Dosage: 10 MG, QD
     Dates: start: 20090201

REACTIONS (4)
  - CAMPYLOBACTER TEST POSITIVE [None]
  - RENAL FAILURE ACUTE [None]
  - DRUG INTERACTION [None]
  - DIARRHOEA [None]
